FAERS Safety Report 4613817-5 (Version None)
Quarter: 2005Q1

REPORT INFORMATION
  Report Type: 
  Country: None (occurrence: None)
  Receive Date: 20050321
  Receipt Date: 20050215
  Transmission Date: 20050727
  Serious: Yes (Hospitalization)
  Sender: FDA-Public Use
  Company Number: US-MERCK-0502USA02159

PATIENT
  Age: 77 Year
  Sex: Female

DRUGS (10)
  1. VYTORIN [Suspect]
     Route: 048
     Dates: start: 20041101, end: 20050201
  2. HYZAAR [Concomitant]
     Route: 048
  3. PLAVIX [Concomitant]
     Route: 065
  4. SULAR [Concomitant]
     Route: 065
  5. GLUCOVANCE [Concomitant]
     Route: 065
  6. PEPCID [Concomitant]
     Route: 065
  7. AMBIEN [Concomitant]
     Route: 065
  8. REGLAN [Concomitant]
     Route: 065
  9. ASPIRIN [Concomitant]
     Route: 065
  10. TOPROL-XL [Concomitant]
     Route: 065

REACTIONS (4)
  - BLOOD CREATININE INCREASED [None]
  - BLOOD POTASSIUM INCREASED [None]
  - BLOOD UREA INCREASED [None]
  - RHABDOMYOLYSIS [None]
